FAERS Safety Report 10135670 (Version 3)
Quarter: 2014Q2

REPORT INFORMATION
  Report Type: Report from Study
  Country: AU (occurrence: AU)
  Receive Date: 20140428
  Receipt Date: 20140623
  Transmission Date: 20141212
  Serious: Yes (Other)
  Sender: FDA-Public Use
  Company Number: PHHY2014AU050111

PATIENT
  Age: 63 Year
  Sex: Female

DRUGS (5)
  1. SANDOSTATIN LAR [Suspect]
     Indication: ACROMEGALY
     Dosage: 20 MG, UNK
     Route: 030
  2. SANDOSTATIN LAR [Suspect]
     Dosage: 20 MG, QMO
     Route: 030
     Dates: start: 20140417
  3. SOMAC [Concomitant]
     Dosage: 20 MG, UNK
     Route: 048
  4. ZOLOFT [Concomitant]
     Dosage: 100 MG, UNK
     Route: 048
  5. THYMINE [Concomitant]
     Dosage: 200/100
     Route: 048

REACTIONS (6)
  - Burning sensation [Unknown]
  - Sleep disorder [Unknown]
  - Gait disturbance [Unknown]
  - Arthralgia [Recovered/Resolved]
  - Pain in extremity [Recovered/Resolved]
  - Musculoskeletal stiffness [Unknown]
